FAERS Safety Report 17548214 (Version 1)
Quarter: 2020Q1

REPORT INFORMATION
  Report Type: Spontaneous
  Country: IT (occurrence: IT)
  Receive Date: 20200317
  Receipt Date: 20200317
  Transmission Date: 20200409
  Serious: Yes (Other)
  Sender: FDA-Public Use
  Company Number: IT-TEVA-2020-IT-1201587

PATIENT
  Age: 30 Year
  Sex: Female
  Weight: 78 kg

DRUGS (3)
  1. OLANZAPINE TEVA 5 MG FILM-COATED TABLETS [Suspect]
     Active Substance: OLANZAPINE
     Indication: BIPOLAR I DISORDER
     Route: 048
     Dates: start: 20161110
  2. OLANZAPINE TEVA 5 MG FILM-COATED TABLETS [Suspect]
     Active Substance: OLANZAPINE
     Route: 048
     Dates: start: 20190108
  3. RESILIENT 83 MG COMPRESSE A RILASCIO PROLUNGATO [Suspect]
     Active Substance: LITHIUM SULFATE
     Indication: BIPOLAR I DISORDER
     Route: 048
     Dates: start: 20180630

REACTIONS (7)
  - Muscle rigidity [Unknown]
  - Arrhythmia [Unknown]
  - Somnolence [Unknown]
  - Bradykinesia [Unknown]
  - Dry mouth [Unknown]
  - Weight increased [Unknown]
  - Menstrual disorder [Unknown]

NARRATIVE: CASE EVENT DATE: 20190330
